FAERS Safety Report 7945155-7 (Version None)
Quarter: 2011Q4

REPORT INFORMATION
  Report Type: 
  Country: None (occurrence: None)
  Receive Date: 20111129
  Receipt Date: 20111117
  Transmission Date: 20120403
  Serious: Yes (Hospitalization)
  Sender: FDA-Public Use
  Company Number: JP-CELGENEUS-087-50794-11113111

PATIENT
  Sex: Female

DRUGS (27)
  1. MICARDIS [Concomitant]
     Dosage: 10 MILLIGRAM
     Route: 048
  2. ITRACONAZOLE [Concomitant]
     Dosage: 100 MILLIGRAM
     Route: 048
  3. SODIUM BICARBONATE [Concomitant]
     Dosage: 1.68 GRAM
     Route: 041
     Dates: start: 20110802, end: 20110804
  4. HANUYAKU-KANZO-TO [Concomitant]
     Dosage: 2 DOSAGE FORMS
     Route: 048
     Dates: end: 20110804
  5. LOXOPROFEN SODIUM HYDRATE [Concomitant]
     Dosage: 60 MILLIGRAM
     Route: 041
  6. BROTIZOLAM [Concomitant]
     Dosage: .25 MILLIGRAM
     Route: 048
     Dates: start: 20110823
  7. FIRSTCIN [Concomitant]
     Dosage: 2 GRAM
     Route: 041
     Dates: start: 20110909, end: 20110911
  8. NEUTROGIN [Concomitant]
     Dosage: 250 MILLIGRAM
     Route: 041
     Dates: start: 20110916, end: 20110930
  9. OMEPRAZOLE [Concomitant]
     Dosage: 20 MILLIGRAM
     Route: 048
  10. ESTAZOLAM [Concomitant]
     Dosage: 2 MILLIGRAM
     Route: 048
     Dates: end: 20110814
  11. PREDNISOLONE [Concomitant]
     Dosage: 1 MILLIGRAM
     Route: 048
     Dates: start: 20110730, end: 20110813
  12. SODIUM PICOSULFATE HYDRATE [Concomitant]
     Dosage: 10 DROPS
     Route: 048
  13. GRAN [Concomitant]
     Dosage: 75 MICROGRAM
     Route: 041
     Dates: start: 20110807, end: 20110809
  14. GRAN [Concomitant]
     Dosage: 75 MICROGRAM
     Route: 041
     Dates: start: 20110906, end: 20110915
  15. FUNGUARD [Concomitant]
     Dosage: 75 MILLIGRAM
     Route: 041
     Dates: start: 20110915, end: 20110925
  16. CARVEDILOL [Concomitant]
     Dosage: 2.5 MILLIGRAM
     Route: 048
  17. FLUCONAZOLE [Concomitant]
     Dosage: 100 MILLIGRAM
     Route: 048
     Dates: start: 20110805
  18. EXJADE [Concomitant]
     Dosage: 1000 MILLIGRAM
     Route: 048
  19. KYTRIL [Concomitant]
     Dosage: 3 MILLIGRAM
     Route: 041
     Dates: start: 20110802, end: 20110806
  20. VIDAZA [Suspect]
     Indication: MYELODYSPLASTIC SYNDROME
     Dosage: 75 MILLIGRAM/SQ. METER
     Route: 041
     Dates: start: 20110802, end: 20110806
  21. LASIX [Concomitant]
     Dosage: 40 MILLIGRAM
     Route: 048
  22. URSO 250 [Concomitant]
     Dosage: 300 MILLIGRAM
     Route: 048
     Dates: start: 20110804
  23. VIDAZA [Suspect]
     Dosage: 75 MILLIGRAM/SQ. METER
     Route: 041
     Dates: start: 20111004, end: 20111005
  24. SPIRONOLACTONE [Concomitant]
     Dosage: 25 MILLIGRAM
     Route: 048
  25. SENNOSIDE [Concomitant]
     Dosage: 24 MILLIGRAM
     Route: 048
  26. FIRSTCIN [Concomitant]
     Dosage: 2 GRAM
     Route: 041
     Dates: start: 20110729, end: 20110808
  27. MEROPENEM [Concomitant]
     Dosage: 1.5 GRAM
     Route: 041
     Dates: start: 20110911, end: 20110925

REACTIONS (8)
  - PLATELET COUNT DECREASED [None]
  - WHITE BLOOD CELL COUNT DECREASED [None]
  - HEPATIC FUNCTION ABNORMAL [None]
  - NEUTROPHIL COUNT DECREASED [None]
  - CONSTIPATION [None]
  - FEBRILE NEUTROPENIA [None]
  - ANAEMIA [None]
  - LYMPHOCYTE COUNT DECREASED [None]
